FAERS Safety Report 4290933-1 (Version None)
Quarter: 2004Q1

REPORT INFORMATION
  Report Type: 
  Country: None (occurrence: None)
  Receive Date: 20040211
  Receipt Date: 20031015
  Transmission Date: 20041129
  Serious: No
  Sender: FDA-Public Use
  Company Number: US-GLAXOSMITHKLINE-A0430443A

PATIENT
  Age: 38 Year
  Sex: Female

DRUGS (3)
  1. PAXIL [Suspect]
     Indication: PANIC DISORDER
     Dosage: 10MG PER DAY
     Route: 048
     Dates: start: 20031014
  2. EGLONYL [Concomitant]
  3. ALPRAZOLAM [Concomitant]

REACTIONS (1)
  - CONDITION AGGRAVATED [None]
